FAERS Safety Report 13212288 (Version 1)
Quarter: 2017Q1

REPORT INFORMATION
  Report Type: Spontaneous
  Country: US (occurrence: US)
  Receive Date: 20170210
  Receipt Date: 20170210
  Transmission Date: 20170428
  Serious: Yes (Other)
  Sender: FDA-Public Use
  Company Number: US-009507513-1702USA002295

PATIENT
  Sex: Female

DRUGS (1)
  1. BELSOMRA [Suspect]
     Active Substance: SUVOREXANT
     Indication: INSOMNIA
     Dosage: 20 MG, UNKNOWN
     Route: 048
     Dates: start: 201611, end: 201701

REACTIONS (3)
  - Nightmare [Unknown]
  - Bipolar disorder [Unknown]
  - Night sweats [Unknown]

NARRATIVE: CASE EVENT DATE: 201701
